FAERS Safety Report 23819142 (Version 1)
Quarter: 2024Q2

REPORT INFORMATION
  Report Type: Spontaneous
  Country: ES (occurrence: ES)
  Receive Date: 20240506
  Receipt Date: 20240506
  Transmission Date: 20240715
  Serious: Yes (Other)
  Sender: FDA-Public Use
  Company Number: ES-Accord-422616

PATIENT
  Age: 65 Year
  Sex: Female
  Weight: 66.9 kg

DRUGS (2)
  1. CARBOPLATIN [Suspect]
     Active Substance: CARBOPLATIN
     Indication: Small cell lung cancer limited stage
     Dosage: Q3W
     Route: 042
  2. ETOPOSIDE [Suspect]
     Active Substance: ETOPOSIDE
     Indication: Small cell lung cancer limited stage
     Dosage: Q3W
     Route: 042

REACTIONS (1)
  - Immune-mediated hepatitis [Unknown]

NARRATIVE: CASE EVENT DATE: 20240416
